FAERS Safety Report 4818275-3 (Version None)
Quarter: 2005Q3

REPORT INFORMATION
  Report Type: 
  Country: None (occurrence: None)
  Receive Date: 20050929
  Receipt Date: 20050701
  Transmission Date: 20060218
  Serious: No
  Sender: FDA-Public Use
  Company Number: 05P-163-0304748-00

PATIENT
  Age: 52 Year
  Sex: Female
  Weight: 72.5755 kg

DRUGS (6)
  1. HUMIRA [Suspect]
     Indication: RHEUMATOID ARTHRITIS
     Dosage: 40 MG, 1 IN 2 WK, SUBCUTANEOUS
     Route: 058
     Dates: start: 20050618, end: 20050701
  2. PREDNISONE [Concomitant]
  3. ESTRACE [Concomitant]
  4. ATENOLOL [Concomitant]
  5. DARVOCET [Concomitant]
  6. ZOLPIDEM TARTRATE [Concomitant]

REACTIONS (7)
  - ABDOMINAL DISCOMFORT [None]
  - DYSGEUSIA [None]
  - DYSPEPSIA [None]
  - FEELING HOT [None]
  - NAUSEA [None]
  - PHARYNGOLARYNGEAL PAIN [None]
  - RASH PRURITIC [None]
